FAERS Safety Report 10914440 (Version 1)
Quarter: 2015Q1

REPORT INFORMATION
  Report Type: Report from Study
  Country: US (occurrence: US)
  Receive Date: 20150313
  Receipt Date: 20150313
  Transmission Date: 20150721
  Serious: Yes (Other)
  Sender: FDA-Public Use
  Company Number: US-GILEAD-2015-0141587

PATIENT
  Age: 61 Year
  Sex: Male

DRUGS (1)
  1. RANOLAZINE [Suspect]
     Active Substance: RANOLAZINE
     Indication: PRODUCT USED FOR UNKNOWN INDICATION
     Dosage: 1000 MG, UNK
     Route: 048

REACTIONS (6)
  - Angioplasty [Unknown]
  - Vascular graft [Unknown]
  - Pneumonia [Unknown]
  - Stent placement [Unknown]
  - Liver transplant [Unknown]
  - Neoplasm malignant [Unknown]
